FAERS Safety Report 7221503-0 (Version None)
Quarter: 2011Q1

REPORT INFORMATION
  Report Type: 
  Country: None (occurrence: None)
  Receive Date: 20110112
  Receipt Date: 20110105
  Transmission Date: 20110831
  Serious: Yes (Other)
  Sender: FDA-Public Use
  Company Number: PHHY2010US70276

PATIENT
  Sex: Male

DRUGS (2)
  1. EXJADE [Suspect]
     Indication: CHRONIC LYMPHOCYTIC LEUKAEMIA
     Dosage: 1250 MG, QD
     Route: 048
  2. EXJADE [Suspect]
     Indication: HYPOGAMMAGLOBULINAEMIA

REACTIONS (2)
  - PROCEDURAL PAIN [None]
  - FATIGUE [None]
